FAERS Safety Report 23082985 (Version 2)
Quarter: 2023Q4

REPORT INFORMATION
  Report Type: Spontaneous
  Country: US (occurrence: US)
  Receive Date: 20231019
  Receipt Date: 20231123
  Transmission Date: 20240110
  Serious: Yes (Hospitalization)
  Sender: FDA-Public Use
  Company Number: US-BRISTOL-MYERS SQUIBB COMPANY-2023-148243

PATIENT
  Age: 93 Year
  Sex: Female
  Weight: 60.78 kg

DRUGS (2)
  1. REVLIMID [Suspect]
     Active Substance: LENALIDOMIDE
     Indication: Myelodysplastic syndrome
     Dosage: 2WKSON,WKSOFF
     Route: 048
  2. REVLIMID [Suspect]
     Active Substance: LENALIDOMIDE
     Dosage: 7D ON 7D OFF.
     Route: 048

REACTIONS (3)
  - Viral infection [Unknown]
  - Diarrhoea [Unknown]
  - Off label use [Unknown]
